FAERS Safety Report 16830784 (Version 2)
Quarter: 2019Q3

REPORT INFORMATION
  Report Type: Report from Study
  Country: DE (occurrence: DE)
  Receive Date: 20190920
  Receipt Date: 20190927
  Transmission Date: 20191005
  Serious: Yes (Hospitalization)
  Sender: FDA-Public Use
  Company Number: DE-ROCHE-2396250

PATIENT
  Age: 32 Year
  Sex: Female

DRUGS (4)
  1. COBIMETINIB. [Suspect]
     Active Substance: COBIMETINIB
     Indication: METASTATIC MALIGNANT MELANOMA
     Route: 048
     Dates: start: 20190508, end: 20190517
  2. COBIMETINIB. [Suspect]
     Active Substance: COBIMETINIB
     Route: 048
     Dates: start: 20190520, end: 20190712
  3. PREDNISOLONE. [Concomitant]
     Active Substance: PREDNISOLONE
     Indication: RASH
     Route: 048
     Dates: start: 20190518, end: 20190527
  4. VEMURAFENIB. [Suspect]
     Active Substance: VEMURAFENIB
     Indication: METASTATIC MALIGNANT MELANOMA
     Route: 048
     Dates: start: 20190508, end: 20190517

REACTIONS (1)
  - Autoimmune hypothyroidism [Not Recovered/Not Resolved]

NARRATIVE: CASE EVENT DATE: 20190518
